FAERS Safety Report 16360914 (Version 1)
Quarter: 2019Q3

REPORT INFORMATION
  Report Type: Spontaneous
  Country: US (occurrence: US)
  Receive Date: 20190524
  Receipt Date: 20190524
  Transmission Date: 20191004
  Serious: Yes (Hospitalization, Disabling)
  Sender: FDA-Public Use
  Company Number: None

PATIENT
  Age: 40 Year
  Sex: Female
  Weight: 54 kg

DRUGS (15)
  1. ELDERBERRY [Concomitant]
     Active Substance: HERBALS
  2. NETTLES [Concomitant]
  3. SYNTHROID [Concomitant]
     Active Substance: LEVOTHYROXINE SODIUM
  4. SELENIUM [Concomitant]
     Active Substance: SELENIUM
  5. WELLBUTRIN [Concomitant]
     Active Substance: BUPROPION HYDROCHLORIDE
  6. HYDROXOCOBALAMIN [Concomitant]
     Active Substance: HYDROXOCOBALAMIN
  7. LDN [Concomitant]
     Active Substance: NALTREXONE
  8. MAGNESIUM [Concomitant]
     Active Substance: MAGNESIUM
  9. RLA [Concomitant]
  10. TURMERIC [Concomitant]
     Active Substance: HERBALS\TURMERIC
  11. CIPROFLOXACIN. [Suspect]
     Active Substance: CIPROFLOXACIN
     Indication: URINARY TRACT INFECTION
     Dosage: ?          QUANTITY:14 TABLET(S);?
     Route: 048
     Dates: start: 20190123, end: 20190126
  12. ARMOUR THYROID [Concomitant]
     Active Substance: THYROID, PORCINE
  13. VYVANSE [Concomitant]
     Active Substance: LISDEXAMFETAMINE DIMESYLATE
  14. ADDERALL [Concomitant]
     Active Substance: AMPHETAMINE ASPARTATE\AMPHETAMINE SULFATE\DEXTROAMPHETAMINE SACCHARATE\DEXTROAMPHETAMINE SULFATE
  15. QUERCETIN [Concomitant]
     Active Substance: QUERCETIN

REACTIONS (35)
  - Psychotic disorder [None]
  - Impaired gastric emptying [None]
  - Palpitations [None]
  - Memory impairment [None]
  - Pain in extremity [None]
  - Fatigue [None]
  - Cognitive disorder [None]
  - Paraesthesia [None]
  - Hypothyroidism [None]
  - Symptom recurrence [None]
  - Depression [None]
  - Dysgraphia [None]
  - Emotional poverty [None]
  - Arthralgia [None]
  - Seborrhoeic dermatitis [None]
  - Osteoarthritis [None]
  - Personality change [None]
  - Musculoskeletal pain [None]
  - Intervertebral disc degeneration [None]
  - Anxiety [None]
  - Rectal haemorrhage [None]
  - Condition aggravated [None]
  - Feeling of body temperature change [None]
  - Hypoacusis [None]
  - Amnesia [None]
  - Learning disorder [None]
  - Impatience [None]
  - Hypovitaminosis [None]
  - Pituitary tumour benign [None]
  - Joint noise [None]
  - Tinnitus [None]
  - Attention deficit/hyperactivity disorder [None]
  - Communication disorder [None]
  - Hypoaesthesia [None]
  - Constipation [None]

NARRATIVE: CASE EVENT DATE: 20190123
